FAERS Safety Report 5006350-2 (Version None)
Quarter: 2006Q2

REPORT INFORMATION
  Report Type: 
  Country: None (occurrence: None)
  Receive Date: 20060516
  Receipt Date: 20060510
  Transmission Date: 20061013
  Serious: Yes (Other)
  Sender: FDA-Public Use
  Company Number: 2006061646

PATIENT
  Age: 78 Year
  Sex: Male

DRUGS (2)
  1. LIPITOR [Suspect]
     Indication: ILL-DEFINED DISORDER
  2. ZOCOR [Concomitant]

REACTIONS (2)
  - DIALYSIS [None]
  - RHABDOMYOLYSIS [None]
